FAERS Safety Report 13110576 (Version 2)
Quarter: 2017Q1

REPORT INFORMATION
  Report Type: Spontaneous
  Country: JP (occurrence: JP)
  Receive Date: 20170112
  Receipt Date: 20170303
  Transmission Date: 20170428
  Serious: Yes (Other)
  Sender: FDA-Public Use
  Company Number: JP-TEVA-728042ISR

PATIENT
  Age: 13 Year
  Sex: Male

DRUGS (14)
  1. ETOPOSIDE. [Suspect]
     Active Substance: ETOPOSIDE
     Indication: ACUTE MYELOID LEUKAEMIA
     Route: 065
     Dates: start: 201212
  2. MITOXANTRONE [Suspect]
     Active Substance: MITOXANTRONE HYDROCHLORIDE
     Indication: ACUTE MYELOID LEUKAEMIA
     Route: 065
     Dates: start: 201212
  3. HYDROCORTISONE. [Suspect]
     Active Substance: HYDROCORTISONE
     Indication: NATURAL KILLER-CELL LEUKAEMIA
     Route: 037
     Dates: start: 201212
  4. ETOPOSIDE. [Suspect]
     Active Substance: ETOPOSIDE
     Indication: NATURAL KILLER-CELL LEUKAEMIA
     Route: 065
     Dates: start: 201212
  5. CYTARABINE. [Suspect]
     Active Substance: CYTARABINE
     Indication: NATURAL KILLER-CELL LEUKAEMIA
     Route: 065
     Dates: start: 201212
  6. CYTARABINE. [Suspect]
     Active Substance: CYTARABINE
     Indication: NATURAL KILLER-CELL LEUKAEMIA
     Route: 037
     Dates: start: 201212
  7. MITOXANTRONE [Suspect]
     Active Substance: MITOXANTRONE HYDROCHLORIDE
     Indication: NATURAL KILLER-CELL LEUKAEMIA
     Route: 065
     Dates: start: 201212
  8. HYDROCORTISONE. [Suspect]
     Active Substance: HYDROCORTISONE
     Indication: ACUTE MYELOID LEUKAEMIA
     Route: 037
     Dates: start: 201212
  9. ASPARAGINASE [Suspect]
     Active Substance: ASPARAGINASE
     Indication: NATURAL KILLER-CELL LEUKAEMIA
     Route: 065
     Dates: start: 201212
  10. ASPARAGINASE [Suspect]
     Active Substance: ASPARAGINASE
     Indication: ACUTE MYELOID LEUKAEMIA
     Route: 065
     Dates: start: 201212
  11. CYTARABINE. [Suspect]
     Active Substance: CYTARABINE
     Indication: ACUTE MYELOID LEUKAEMIA
     Route: 065
     Dates: start: 201212
  12. CYTARABINE. [Suspect]
     Active Substance: CYTARABINE
     Indication: ACUTE MYELOID LEUKAEMIA
     Route: 037
     Dates: start: 201212
  13. METHOTREXATE. [Suspect]
     Active Substance: METHOTREXATE
     Indication: ACUTE MYELOID LEUKAEMIA
     Route: 037
     Dates: start: 201212
  14. METHOTREXATE. [Suspect]
     Active Substance: METHOTREXATE
     Indication: NATURAL KILLER-CELL LEUKAEMIA
     Route: 037
     Dates: start: 201212

REACTIONS (2)
  - Eye disorder [Recovered/Resolved]
  - Leukaemic infiltration [Recovered/Resolved]

NARRATIVE: CASE EVENT DATE: 201302
